FAERS Safety Report 14111163 (Version 2)
Quarter: 2017Q4

REPORT INFORMATION
  Report Type: Spontaneous
  Country: US (occurrence: US)
  Receive Date: 20171020
  Receipt Date: 20171219
  Transmission Date: 20180321
  Serious: Yes (Hospitalization, Other)
  Sender: FDA-Public Use
  Company Number: US-GLAXOSMITHKLINE-US2017GSK160158

PATIENT
  Age: 48 Year
  Sex: Female

DRUGS (6)
  1. WELLBUTRIN XL [Suspect]
     Active Substance: BUPROPION HYDROCHLORIDE
     Dosage: 450 MG, QD
     Route: 048
  2. WELLBUTRIN XL [Suspect]
     Active Substance: BUPROPION HYDROCHLORIDE
     Indication: DEPRESSION
     Dosage: 450 MG, QD
     Route: 048
     Dates: start: 200608, end: 20120618
  3. WELLBUTRIN XL [Suspect]
     Active Substance: BUPROPION HYDROCHLORIDE
     Dosage: 300 MG, QD
     Route: 048
     Dates: start: 200608, end: 20120618
  4. WELLBUTRIN XL [Suspect]
     Active Substance: BUPROPION HYDROCHLORIDE
     Dosage: 300 MG, QD
     Route: 048
  5. SERTRALINE [Suspect]
     Active Substance: SERTRALINE HYDROCHLORIDE
     Indication: DEPRESSION
     Dosage: 87.5 MG, UNK
     Route: 048
  6. TAMOXIFEN [Suspect]
     Active Substance: TAMOXIFEN
     Indication: BREAST CANCER METASTATIC

REACTIONS (5)
  - Weight increased [Unknown]
  - Drug interaction [Unknown]
  - Prescribed overdose [Unknown]
  - Breast cancer metastatic [Recovered/Resolved with Sequelae]
  - Drug ineffective [Unknown]

NARRATIVE: CASE EVENT DATE: 20120618
